FAERS Safety Report 8611485-9 (Version None)
Quarter: 2012Q3

REPORT INFORMATION
  Report Type: 
  Country: None (occurrence: None)
  Receive Date: 20120822
  Receipt Date: 20120813
  Transmission Date: 20120928
  Serious: Yes (Other)
  Sender: FDA-Public Use
  Company Number: US-ASTRAZENECA-2012SE37256

PATIENT
  Age: 32 Year
  Sex: Male
  Weight: 53.9 kg

DRUGS (6)
  1. OXYCONTIN [Concomitant]
     Route: 048
  2. SYNTHROID [Concomitant]
     Route: 048
  3. CAPRELSA [Suspect]
     Indication: MULTIPLE MYELOMA
     Route: 048
     Dates: start: 20120426, end: 20120705
  4. OXYCONTIN [Concomitant]
     Route: 048
  5. CAPRELSA [Suspect]
     Indication: THYROID CANCER
     Route: 048
     Dates: start: 20120426, end: 20120705
  6. CAPRELSA [Suspect]
     Indication: THYROID DISORDER
     Route: 048
     Dates: start: 20120426, end: 20120705

REACTIONS (3)
  - ELECTROCARDIOGRAM QT PROLONGED [None]
  - SKIN SENSITISATION [None]
  - ACNE [None]
